FAERS Safety Report 23479387 (Version 2)
Quarter: 2024Q1

REPORT INFORMATION
  Report Type: Spontaneous
  Country: IT (occurrence: IT)
  Receive Date: 20240205
  Receipt Date: 20240214
  Transmission Date: 20240410
  Serious: Yes (Other)
  Sender: FDA-Public Use
  Company Number: None

PATIENT
  Age: 86 Year
  Sex: Male

DRUGS (14)
  1. RIVAROXABAN [Suspect]
     Active Substance: RIVAROXABAN
     Indication: Product used for unknown indication
     Dosage: XARELTO*28CPR RIV 20MG - SCHEMA POSOLOGICO: 1 CPR/DIE
     Route: 048
  2. ATORVASTATIN [Concomitant]
     Active Substance: ATORVASTATIN
     Indication: Dyslipidaemia
     Dosage: TORVAST*30CPR RIV 40MG  1 CP/DIE LA SERA
     Route: 048
     Dates: start: 2023
  3. METOPROLOLO EG [Concomitant]
     Indication: Hypertension
     Route: 048
     Dates: start: 2023
  4. METOPROLOLO EG [Concomitant]
     Indication: Cardiac failure
  5. SPIRIVA [Concomitant]
     Active Substance: TIOTROPIUM BROMIDE MONOHYDRATE
     Indication: Chronic obstructive pulmonary disease
     Dosage: SPIRIVA*30CPS 18MCG HANDIHALER  1 CPS/DIE (INAL)
     Dates: start: 2023
  6. OMEPRAZOLE [Concomitant]
     Active Substance: OMEPRAZOLE
     Indication: Gastrointestinal disorder
     Dosage: OMEPRAZEN*28CPS 20MG  1 CP/DIE
     Route: 048
     Dates: start: 2023
  7. JARDIANCE [Concomitant]
     Active Substance: EMPAGLIFLOZIN
     Indication: Diabetes mellitus
     Dosage: JARDIANCE*28CPR RIV 10MG  1 CP/DIE
     Route: 048
     Dates: start: 202303
  8. SALMETEROLO E FLUTICASONE EG [Concomitant]
     Indication: Chronic obstructive pulmonary disease
     Dosage: SALMETEROLO FLUT EG*1IN 50+500  1 INAL/DIE
     Dates: start: 2023
  9. LOSARTAN DOC [Concomitant]
     Indication: Hypertension
     Dosage: LOSARTAN DOC*28CPR RIV 50MG  HALF CP/DIE
     Route: 048
     Dates: start: 2023
  10. LOSARTAN DOC [Concomitant]
     Indication: Cardiac failure
  11. NORVASC [Concomitant]
     Active Substance: AMLODIPINE BESYLATE
     Indication: Hypertension
     Dosage: NORVASC*28CPR 5MG  1 CP/DIE
     Route: 048
     Dates: start: 2023
  12. TAMSULOSIN HYDROCHLORIDE [Concomitant]
     Active Substance: TAMSULOSIN HYDROCHLORIDE
     Indication: Benign prostatic hyperplasia
     Dosage: OMNIC*20CPS 0,4MG RM  1 CP/DIE
     Route: 048
     Dates: start: 2023
  13. VICTOZA [Concomitant]
     Active Substance: LIRAGLUTIDE
     Indication: Diabetes mellitus
     Dosage: VICTOZA*SC 2PEN 3ML 6MG/ML  1,8MG/DIE (SOTTOCUTE)
     Route: 058
     Dates: start: 2021
  14. LASIX [Concomitant]
     Active Substance: FUROSEMIDE
     Indication: Hypertensive heart disease
     Dosage: LASIX*30CPR 25MG  1 CP/DIE
     Route: 048
     Dates: start: 2023

REACTIONS (3)
  - Renal failure [Not Recovered/Not Resolved]
  - Blood creatinine increased [Not Recovered/Not Resolved]
  - Glomerular filtration rate decreased [Not Recovered/Not Resolved]

NARRATIVE: CASE EVENT DATE: 20230601
